FAERS Safety Report 14655800 (Version 1)
Quarter: 2018Q1

REPORT INFORMATION
  Report Type: Spontaneous
  Country: BR (occurrence: BR)
  Receive Date: 20180319
  Receipt Date: 20180319
  Transmission Date: 20180509
  Serious: Yes (Hospitalization, Other)
  Sender: FDA-Public Use
  Company Number: BR-TEVA-2018-BR-869683

PATIENT
  Age: 68 Year
  Sex: Male
  Weight: 74 kg

DRUGS (6)
  1. ATENOLOL. [Concomitant]
     Active Substance: ATENOLOL
     Indication: INFARCTION
     Route: 048
     Dates: start: 201707
  2. AAS [Concomitant]
     Active Substance: ASPIRIN
     Indication: INFARCTION
     Route: 048
     Dates: start: 201707
  3. SIMVASTATIN. [Concomitant]
     Active Substance: SIMVASTATIN
     Indication: INFARCTION
     Route: 048
     Dates: start: 201707
  4. STUB [Suspect]
     Active Substance: TAMSULOSIN
     Indication: PROSTATE CANCER
     Dosage: .4 MILLIGRAM DAILY; ONCE A DAY AT NIGHT
     Route: 048
     Dates: start: 20180105, end: 20180106
  5. SUSTRATE [Concomitant]
     Active Substance: PROPATYL NITRATE
     Indication: INFARCTION
     Route: 048
     Dates: start: 201707
  6. ZOLADEX [Suspect]
     Active Substance: GOSERELIN ACETATE
     Route: 048
     Dates: start: 20171013

REACTIONS (8)
  - Speech disorder [Recovered/Resolved]
  - Malaise [Recovered/Resolved]
  - Vision blurred [Recovered/Resolved]
  - Loss of consciousness [Recovered/Resolved]
  - Somnolence [Recovered/Resolved]
  - Swollen tongue [Recovered/Resolved]
  - Cerebrovascular accident [Recovered/Resolved]
  - Syncope [Recovered/Resolved]

NARRATIVE: CASE EVENT DATE: 20180106
